FAERS Safety Report 13994220 (Version 2)
Quarter: 2017Q3

REPORT INFORMATION
  Report Type: Spontaneous
  Country: US (occurrence: US)
  Receive Date: 20170920
  Receipt Date: 20170929
  Transmission Date: 20171128
  Serious: Yes (Hospitalization)
  Sender: FDA-Public Use
  Company Number: US-VIFOR (INTERNATIONAL) INC.-VIT-2017-09493

PATIENT
  Sex: Male

DRUGS (23)
  1. METOLAZONE. [Concomitant]
     Active Substance: METOLAZONE
  2. ANAFRANIL [Concomitant]
     Active Substance: CLOMIPRAMINE HYDROCHLORIDE
  3. BENZATROPINE MESILATE [Concomitant]
     Active Substance: BENZTROPINE
  4. PHOSLO [Concomitant]
     Active Substance: CALCIUM ACETATE
  5. NEPHRO-VITE [Concomitant]
  6. PHENOBARBITAL. [Concomitant]
     Active Substance: PHENOBARBITAL
  7. SYNTHROID [Concomitant]
     Active Substance: LEVOTHYROXINE SODIUM
  8. FLOMAX [Concomitant]
     Active Substance: TAMSULOSIN HYDROCHLORIDE
  9. MIRALAX [Concomitant]
     Active Substance: POLYETHYLENE GLYCOL 3350
  10. SEROQUEL [Concomitant]
     Active Substance: QUETIAPINE FUMARATE
  11. PARACETAMOL [Concomitant]
     Active Substance: ACETAMINOPHEN
  12. VELTASSA [Suspect]
     Active Substance: PATIROMER
     Indication: HYPERKALAEMIA
     Route: 048
     Dates: start: 20170215
  13. ERGOCALCIFEROL. [Concomitant]
     Active Substance: ERGOCALCIFEROL
  14. ROZEREM [Concomitant]
     Active Substance: RAMELTEON
  15. DEPAKOTE [Concomitant]
     Active Substance: DIVALPROEX SODIUM
  16. RANITIDINE HYDROCHLORIDE. [Concomitant]
     Active Substance: RANITIDINE HYDROCHLORIDE
  17. CALCIUM ACETATE. [Concomitant]
     Active Substance: CALCIUM ACETATE
  18. SODIUM POLYSTYRENE SULFONATE. [Concomitant]
     Active Substance: SODIUM POLYSTYRENE SULFONATE
  19. SIMETHICONE (DIMETHICONE) [Concomitant]
     Active Substance: DIMETHICONE
  20. LACTULOSE. [Concomitant]
     Active Substance: LACTULOSE
  21. CARBAMAZEPINE. [Concomitant]
     Active Substance: CARBAMAZEPINE
  22. KLONOPIN [Concomitant]
     Active Substance: CLONAZEPAM
  23. SODIUM CARBONATE ANHYDROUS [Concomitant]

REACTIONS (2)
  - Cardiac failure congestive [Unknown]
  - Pneumonia [Unknown]

NARRATIVE: CASE EVENT DATE: 2017
